FAERS Safety Report 11245268 (Version 3)
Quarter: 2015Q3

REPORT INFORMATION
  Report Type: Spontaneous
  Country: US (occurrence: US)
  Receive Date: 20150707
  Receipt Date: 20150805
  Transmission Date: 20151125
  Serious: Yes (Other)
  Sender: FDA-Public Use
  Company Number: US-SA-2015SA096402

PATIENT
  Age: 59 Year
  Sex: Male

DRUGS (4)
  1. ICY HOT MEDICATED, BACK [Suspect]
     Active Substance: MENTHOL
     Indication: MUSCULOSKELETAL PAIN
     Route: 065
     Dates: start: 20150613
  2. ICY HOT MEDICATED, BACK [Suspect]
     Active Substance: MENTHOL
     Indication: MUSCULOSKELETAL PAIN
     Route: 065
     Dates: start: 20150613
  3. ICY HOT MEDICATED, BACK [Suspect]
     Active Substance: MENTHOL
     Indication: MUSCULOSKELETAL PAIN
     Route: 065
     Dates: start: 20150613
  4. ICY HOT MEDICATED, BACK [Suspect]
     Active Substance: MENTHOL
     Indication: MUSCULOSKELETAL PAIN
     Route: 065
     Dates: start: 20150613

REACTIONS (10)
  - Secretion discharge [Recovered/Resolved]
  - Chemical burn of skin [Recovered/Resolved]
  - Scar [Unknown]
  - Pyrexia [Unknown]
  - Pain [Recovered/Resolved]
  - Muscle spasms [Unknown]
  - Infection [Not Recovered/Not Resolved]
  - Skin abrasion [Recovered/Resolved]
  - Back pain [Recovered/Resolved]
  - Skin exfoliation [Recovered/Resolved]

NARRATIVE: CASE EVENT DATE: 20150613
